FAERS Safety Report 4811909-9 (Version None)
Quarter: 2005Q4

REPORT INFORMATION
  Report Type: 
  Country: None (occurrence: None)
  Receive Date: 20051028
  Receipt Date: 20041014
  Transmission Date: 20060501
  Serious: No
  Sender: FDA-Public Use
  Company Number: US-GLAXOSMITHKLINE-A0530162A

PATIENT
  Age: 50 Year
  Sex: Female

DRUGS (9)
  1. ADVAIR DISKUS 100/50 [Suspect]
     Indication: ASTHMA
     Dosage: 1PUFF TWICE PER DAY
     Route: 055
     Dates: start: 20040901
  2. SINGULAIR [Concomitant]
  3. CLARINEX [Concomitant]
  4. NEXIUM [Concomitant]
  5. BENTYL [Concomitant]
  6. BENTYL [Concomitant]
  7. LASIX [Concomitant]
  8. ESTROGEN [Concomitant]
  9. MULTI-VITAMIN [Concomitant]

REACTIONS (2)
  - DYSPHONIA [None]
  - LARYNGOSPASM [None]
